FAERS Safety Report 19782076 (Version 2)
Quarter: 2021Q3

REPORT INFORMATION
  Report Type: Spontaneous
  Country: US (occurrence: US)
  Receive Date: 20210902
  Receipt Date: 20210913
  Transmission Date: 20211014
  Serious: Yes (Other)
  Sender: FDA-Public Use
  Company Number: US-TEVA-2021-US-1946938

PATIENT
  Sex: Male

DRUGS (24)
  1. BUPRENORPHINE. [Suspect]
     Active Substance: BUPRENORPHINE
     Dosage: 1 MILLIGRAM DAILY; DAY 4
     Route: 060
  2. BUPRENORPHINE. [Suspect]
     Active Substance: BUPRENORPHINE
     Dosage: DAY 7
     Route: 060
  3. BUPRENORPHINE. [Suspect]
     Active Substance: BUPRENORPHINE
     Dosage: 6 MILLIGRAM DAILY; 2MG THREE TIMES DAILY ON DAY 8
     Route: 060
  4. NALOXONE [Suspect]
     Active Substance: NALOXONE
     Indication: DRUG USE DISORDER
     Dosage: .25 MILLIGRAM DAILY; DAY 4
     Route: 060
  5. NALOXONE [Suspect]
     Active Substance: NALOXONE
     Dosage: 2 MILLIGRAM DAILY; DAY 9
     Route: 060
  6. NALOXONE [Suspect]
     Active Substance: NALOXONE
     Dosage: 3 MILLIGRAM DAILY; 1MG THREE TIMES DAILY ON DAY 10
     Route: 060
  7. NALOXONE [Suspect]
     Active Substance: NALOXONE
     Dosage: 3 MILLIGRAM DAILY; ON DAY 11
     Route: 060
  8. NALOXONE [Suspect]
     Active Substance: NALOXONE
     Dosage: .375 MILLIGRAM DAILY; 0.125MG THREE TIMES DAILY ON DAY 5
     Route: 060
  9. METHADONE [Suspect]
     Active Substance: METHADONE HYDROCHLORIDE
     Dosage: 75 MILLIGRAM DAILY; HE WAS MAINTAINED ON 75 MG OF ORAL METHADONE
     Route: 048
  10. NALOXONE [Suspect]
     Active Substance: NALOXONE
     Dosage: 1 MILLIGRAM DAILY; DAY 7
     Route: 060
  11. NALOXONE [Suspect]
     Active Substance: NALOXONE
     Dosage: 1 MILLIGRAM DAILY; ADDITIONAL DOSE ON DAY 11
     Route: 060
  12. BUPRENORPHINE. [Suspect]
     Active Substance: BUPRENORPHINE
     Dosage: 12 MILLIGRAM DAILY; ON DAY 11
     Route: 060
  13. NALOXONE [Suspect]
     Active Substance: NALOXONE
     Dosage: 4 MILLIGRAM DAILY; ON DAY 12 ONWARDS
     Route: 060
  14. BUPRENORPHINE. [Suspect]
     Active Substance: BUPRENORPHINE
     Indication: DRUG USE DISORDER
     Route: 065
  15. BUPRENORPHINE. [Suspect]
     Active Substance: BUPRENORPHINE
     Dosage: 120 MICROGRAM DAILY; TRANSCUTANEOUS
     Route: 003
  16. BUPRENORPHINE. [Suspect]
     Active Substance: BUPRENORPHINE
     Dosage: 1.5 MILLIGRAM DAILY; 0.5MG THREE TIMES DAILY ON DAY 5
     Route: 060
  17. BUPRENORPHINE. [Suspect]
     Active Substance: BUPRENORPHINE
     Dosage: 8 MILLIGRAM DAILY; DAY 9
     Route: 060
  18. METHADONE [Suspect]
     Active Substance: METHADONE HYDROCHLORIDE
     Indication: DRUG USE DISORDER
     Dosage: DOSE RANGE 75?120 MG
     Route: 048
  19. BUPRENORPHINE. [Suspect]
     Active Substance: BUPRENORPHINE
     Dosage: 2 MILLIGRAM DAILY; DAY 6
     Route: 060
  20. BUPRENORPHINE. [Suspect]
     Active Substance: BUPRENORPHINE
     Dosage: 12 MILLIGRAM DAILY; 4MG THREE TIMES DAILY ON DAY 10
     Route: 060
  21. BUPRENORPHINE. [Suspect]
     Active Substance: BUPRENORPHINE
     Dosage: 4 MILLIGRAM DAILY; ADDITIONAL DOSE ON DAY 11
     Route: 060
  22. NALOXONE [Suspect]
     Active Substance: NALOXONE
     Dosage: 1.5 MILLIGRAM DAILY; 0.5 MG THREE TIMES DAILY ON DAY 8
     Route: 060
  23. BUPRENORPHINE. [Suspect]
     Active Substance: BUPRENORPHINE
     Dosage: 16 MILLIGRAM DAILY; ON DAY 12 ONWARDS
     Route: 060
  24. NALOXONE [Suspect]
     Active Substance: NALOXONE
     Dosage: .5 MILLIGRAM DAILY; DAY 6
     Route: 060

REACTIONS (6)
  - Libido decreased [Unknown]
  - Asthenia [Unknown]
  - Erectile dysfunction [Unknown]
  - Endocrine disorder [Unknown]
  - Off label use [Unknown]
  - Drug withdrawal syndrome [Unknown]
